FAERS Safety Report 21207202 (Version 2)
Quarter: 2022Q3

REPORT INFORMATION
  Report Type: Spontaneous
  Country: US (occurrence: US)
  Receive Date: 20220812
  Receipt Date: 20220909
  Transmission Date: 20221026
  Serious: No
  Sender: FDA-Public Use
  Company Number: US-GSK-US2022AMR117935

PATIENT
  Sex: Female

DRUGS (1)
  1. BENLYSTA [Suspect]
     Active Substance: BELIMUMAB
     Indication: Systemic lupus erythematosus
     Dosage: UNK

REACTIONS (5)
  - Renal pain [Unknown]
  - Pollakiuria [Unknown]
  - Nausea [Not Recovered/Not Resolved]
  - Blood urine present [Not Recovered/Not Resolved]
  - Protein urine present [Not Recovered/Not Resolved]

NARRATIVE: CASE EVENT DATE: 20220905
